FAERS Safety Report 17872136 (Version 1)
Quarter: 2020Q2

REPORT INFORMATION
  Report Type: Spontaneous
  Country: US (occurrence: US)
  Receive Date: 20200608
  Receipt Date: 20200608
  Transmission Date: 20200714
  Serious: Yes (Hospitalization)
  Sender: FDA-Public Use
  Company Number: US-NOVOPROD-731621

PATIENT
  Age: 84 Year
  Sex: Female

DRUGS (4)
  1. NOVOLOG [Suspect]
     Active Substance: INSULIN ASPART
     Indication: DIABETES MELLITUS
     Dosage: 4 UNITS WITH MEALS + SLIDING SCALE,  10 UNITS WITH MEALS + SLIDING SCALE
     Route: 058
  2. LEVEMIR [Suspect]
     Active Substance: INSULIN DETEMIR
     Dosage: 4UNITS
     Route: 058
  3. LEVEMIR [Suspect]
     Active Substance: INSULIN DETEMIR
     Indication: DIABETES MELLITUS
     Dosage: FROM 6 UNITS TO 4UNITS
     Route: 058
  4. NOVOLOG [Suspect]
     Active Substance: INSULIN ASPART
     Dosage: 10 UNITS WITH MEALS + SLIDING SCALE
     Route: 058

REACTIONS (4)
  - Blood glucose decreased [Recovered/Resolved]
  - Decreased appetite [Recovered/Resolved]
  - Pneumonia aspiration [Recovering/Resolving]
  - Product communication issue [Unknown]

NARRATIVE: CASE EVENT DATE: 202004
